FAERS Safety Report 22609020 (Version 1)
Quarter: 2023Q2

REPORT INFORMATION
  Report Type: Spontaneous
  Country: US (occurrence: US)
  Receive Date: 20230616
  Receipt Date: 20230616
  Transmission Date: 20230722
  Serious: Yes (Hospitalization, Other)
  Sender: FDA-Public Use
  Company Number: US-CADILA HEALTHCARE LIMITED-US-ZYDUS-094202

PATIENT

DRUGS (12)
  1. CLONIDINE [Interacting]
     Active Substance: CLONIDINE
     Indication: Anxiety
     Dosage: 0.1 MILLIGRAM, TID
     Route: 065
  2. BUPROPION [Interacting]
     Active Substance: BUPROPION
     Indication: Anxiety
     Dosage: 450 MILLIGRAM, QD
     Route: 065
  3. DESVENLAFAXINE [Interacting]
     Active Substance: DESVENLAFAXINE
     Indication: Anxiety
     Dosage: 200 MILLIGRAM, QD
     Route: 065
  4. YOHIMBINE [Interacting]
     Active Substance: YOHIMBINE
     Indication: Supplementation therapy
     Dosage: UNK
     Route: 065
  5. LISDEXAMFETAMINE [Concomitant]
     Active Substance: LISDEXAMFETAMINE
     Indication: Product used for unknown indication
     Dosage: 60 MILLIGRAM EVERY MORNING
     Route: 065
  6. LISDEXAMFETAMINE [Concomitant]
     Active Substance: LISDEXAMFETAMINE
     Dosage: 40 MILLIGRAM AT NOON
     Route: 065
  7. TRAZODONE [Concomitant]
     Active Substance: TRAZODONE HYDROCHLORIDE
     Indication: Product used for unknown indication
     Dosage: 100 MILLIGRAM NIGHTLY
     Route: 065
  8. LEVONORGESTREL [Concomitant]
     Active Substance: LEVONORGESTREL
     Indication: Product used for unknown indication
     Dosage: IUD
     Route: 065
  9. BUPRENORPHINE HYDROCHLORIDE\NALOXONE HYDROCHLORIDE [Concomitant]
     Active Substance: BUPRENORPHINE HYDROCHLORIDE\NALOXONE HYDROCHLORIDE
     Indication: Product used for unknown indication
     Dosage: 1.5 FILMS DAILY
     Route: 065
  10. ONDANSETRON [Concomitant]
     Active Substance: ONDANSETRON
     Indication: Product used for unknown indication
     Dosage: UNK
     Route: 065
  11. DIPHENHYDRAMINE [Concomitant]
     Active Substance: DIPHENHYDRAMINE
     Indication: Product used for unknown indication
     Dosage: UNK
     Route: 065
  12. FAMOTIDINE [Concomitant]
     Active Substance: FAMOTIDINE
     Indication: Product used for unknown indication
     Dosage: UNK
     Route: 065

REACTIONS (4)
  - Drug interaction [Unknown]
  - Haemorrhage intracranial [Unknown]
  - Hypertensive emergency [Unknown]
  - Sympathomimetic effect [Unknown]
